FAERS Safety Report 6782710-4 (Version None)
Quarter: 2010Q2

REPORT INFORMATION
  Report Type: 
  Country: None (occurrence: None)
  Receive Date: 20100621
  Receipt Date: 20100610
  Transmission Date: 20101027
  Serious: Yes (Other)
  Sender: FDA-Public Use
  Company Number: US-ALLERGAN-1007980US

PATIENT
  Sex: Male

DRUGS (2)
  1. ACUVAIL [Suspect]
     Indication: CATARACT OPERATION
  2. PRED FORTE [Suspect]
     Indication: CATARACT OPERATION

REACTIONS (1)
  - ULCERATIVE KERATITIS [None]
